FAERS Safety Report 13933890 (Version 5)
Quarter: 2019Q1

REPORT INFORMATION
  Report Type: Spontaneous
  Country: US (occurrence: US)
  Receive Date: 20170904
  Receipt Date: 20190220
  Transmission Date: 20190417
  Serious: Yes (Hospitalization)
  Sender: FDA-Public Use
  Company Number: US-DSJP-DSU-2017-134594

PATIENT

DRUGS (1)
  1. BENICAR [Suspect]
     Active Substance: OLMESARTAN MEDOXOMIL
     Indication: ESSENTIAL HYPERTENSION
     Dosage: 40 MG, QD
     Route: 048
     Dates: start: 20040903, end: 20170821

REACTIONS (10)
  - Haemorrhoids [Unknown]
  - Rectal polyp [Recovered/Resolved]
  - Constipation [Unknown]
  - Large intestine polyp [Not Recovered/Not Resolved]
  - Gastritis [Not Recovered/Not Resolved]
  - Hiatus hernia [Unknown]
  - Hyponatraemia [Recovered/Resolved]
  - Gastrooesophageal reflux disease [Unknown]
  - Helicobacter infection [Recovering/Resolving]
  - Gastroenteritis [Recovered/Resolved]

NARRATIVE: CASE EVENT DATE: 20050718
